FAERS Safety Report 5776262-5 (Version None)
Quarter: 2008Q2

REPORT INFORMATION
  Report Type: 
  Country: None (occurrence: None)
  Receive Date: 20080616
  Receipt Date: 20080529
  Transmission Date: 20081010
  Serious: Yes (Other)
  Sender: FDA-Public Use
  Company Number: S08-SWI-02029-01

PATIENT
  Age: 38 Year
  Sex: Female

DRUGS (2)
  1. CITALOPRAM HYDROBROMIDE [Suspect]
     Indication: DEPRESSION
     Dosage: 20 MG QD PO
     Route: 048
     Dates: start: 20071207
  2. ZOLOFT [Suspect]
     Indication: DEPRESSION
     Dosage: 50 MG QD PO
     Route: 048
     Dates: start: 20040322, end: 20071206

REACTIONS (4)
  - ABORTION SPONTANEOUS [None]
  - AMENORRHOEA [None]
  - DRUG EXPOSURE DURING PREGNANCY [None]
  - INTRA-UTERINE DEATH [None]
